FAERS Safety Report 7056446-9 (Version None)
Quarter: 2010Q4

REPORT INFORMATION
  Report Type: 
  Country: None (occurrence: None)
  Receive Date: 20101021
  Receipt Date: 20101016
  Transmission Date: 20110411
  Serious: Yes (Death)
  Sender: FDA-Public Use
  Company Number: IN-PFIZER INC-2010131486

PATIENT
  Age: 34 Year
  Sex: Female

DRUGS (1)
  1. MAGNEX [Suspect]
     Indication: INFECTION
     Dosage: UNK
     Route: 042

REACTIONS (1)
  - ANAPHYLACTIC SHOCK [None]
